FAERS Safety Report 6112428-2 (Version None)
Quarter: 2009Q1

REPORT INFORMATION
  Report Type: 
  Country: None (occurrence: None)
  Receive Date: 20090312
  Receipt Date: 20090226
  Transmission Date: 20090719
  Serious: Yes (Other)
  Sender: FDA-Public Use
  Company Number: PHHY2009FR07446

PATIENT

DRUGS (1)
  1. CGP 57148B T35717+ [Suspect]

REACTIONS (2)
  - CORONARY ARTERY DILATATION [None]
  - OEDEMA PERIPHERAL [None]
